FAERS Safety Report 17913079 (Version 3)
Quarter: 2021Q4

REPORT INFORMATION
  Report Type: Spontaneous
  Country: DE (occurrence: DE)
  Receive Date: 20200618
  Receipt Date: 20211007
  Transmission Date: 20220303
  Serious: Yes (Other)
  Sender: FDA-Public Use
  Company Number: DE-002147023-NVSC2020DE046109

PATIENT
  Age: 70 Year
  Sex: Female
  Weight: 75.6 kg

DRUGS (23)
  1. VALSARTAN [Suspect]
     Active Substance: VALSARTAN
     Indication: Product used for unknown indication
     Dosage: 80 MG, BID (80 MG/12.5 MG)
     Route: 065
     Dates: start: 20150421
  2. VALSARTAN [Suspect]
     Active Substance: VALSARTAN
     Dosage: 80 MG, QD (80MG/12.5 MG)
     Route: 065
     Dates: start: 20150421
  3. VALSARTAN [Suspect]
     Active Substance: VALSARTAN
     Indication: Product used for unknown indication
     Dosage: 80 MG (80 MG/ 12.5 MG)
     Route: 065
     Dates: start: 201209
  4. VALSARTAN [Suspect]
     Active Substance: VALSARTAN
     Dosage: 80 MG, QD (80 MG/ 12.5 MG)
     Route: 065
     Dates: start: 20140127, end: 20140713
  5. VALSARTAN [Suspect]
     Active Substance: VALSARTAN
     Dosage: 80 MG, BID (80 MG/ 12.5 MG)
     Route: 065
     Dates: start: 20140714
  6. VALSARTAN [Suspect]
     Active Substance: VALSARTAN
     Dosage: 80 MG, QD (80 MG/ 12.5 MG)
     Route: 065
     Dates: start: 20180705, end: 20180715
  7. VALSARTAN [Suspect]
     Active Substance: VALSARTAN
     Dosage: 80 MG, QD (HALF 80 MG)
     Route: 065
     Dates: start: 20170406, end: 20180704
  8. VALSARTAN [Suspect]
     Active Substance: VALSARTAN
     Dosage: 80 MG, QD (HALF 80 MG)
     Route: 065
     Dates: start: 20180705, end: 20180715
  9. VALSARTAN [Suspect]
     Active Substance: VALSARTAN
     Dosage: 160 MG, BID (80 MG/ 12.5 MG)
     Dates: start: 20140714
  10. DICLOFENAC\ORPHENADRINE [Suspect]
     Active Substance: DICLOFENAC\ORPHENADRINE
     Indication: Product used for unknown indication
     Dosage: UNK
     Route: 065
  11. MAGNESIUM [Concomitant]
     Active Substance: MAGNESIUM
     Indication: Product used for unknown indication
     Dosage: UNK
     Route: 065
     Dates: start: 1997
  12. BETAVERT                           /00141803/ [Concomitant]
     Indication: Product used for unknown indication
     Dosage: 24 MG
     Route: 065
     Dates: start: 20180119, end: 20180131
  13. VENORUTON INTENS [Concomitant]
     Indication: Product used for unknown indication
     Dosage: UNK
     Route: 065
     Dates: start: 1997
  14. HYDROCHLOROTHIAZIDE\VALSARTAN [Concomitant]
     Active Substance: HYDROCHLOROTHIAZIDE\VALSARTAN
     Indication: Product used for unknown indication
     Dosage: UNK
     Route: 065
     Dates: start: 20151128
  15. HYDROCHLOROTHIAZIDE\VALSARTAN [Concomitant]
     Active Substance: HYDROCHLOROTHIAZIDE\VALSARTAN
     Dosage: UNK
     Dates: start: 20151128, end: 201807
  16. VALSARTAN [Concomitant]
     Active Substance: VALSARTAN
     Indication: Product used for unknown indication
     Dosage: 80 MG, HALF A TABLET
     Route: 065
     Dates: start: 20151128
  17. BACTOFLOX                          /00697201/ [Concomitant]
     Indication: Product used for unknown indication
     Dosage: UNK
     Route: 065
  18. METHOTREXATE [Concomitant]
     Active Substance: METHOTREXATE
     Indication: Product used for unknown indication
     Dosage: UNK
     Route: 065
  19. CEFUROXIME [Concomitant]
     Active Substance: CEFUROXIME
     Indication: Product used for unknown indication
     Dosage: UNK
     Route: 065
  20. CANDESARTAN CILEXETIL\HYDROCHLOROTHIAZIDE [Concomitant]
     Active Substance: CANDESARTAN CILEXETIL\HYDROCHLOROTHIAZIDE
     Indication: Product used for unknown indication
     Dosage: UNK
     Route: 065
  21. METRONIDAZOLE BENZOATE [Concomitant]
     Active Substance: METRONIDAZOLE BENZOATE
     Indication: Product used for unknown indication
     Dosage: UNK
     Route: 065
  22. METAMIZOLE [Concomitant]
     Active Substance: METAMIZOLE
     Indication: Product used for unknown indication
     Dosage: UNK
     Route: 065
  23. OLMESARTAN [Concomitant]
     Active Substance: OLMESARTAN
     Indication: Product used for unknown indication
     Dosage: UNK
     Route: 065

REACTIONS (35)
  - Stenosis [Unknown]
  - Diverticulitis [Unknown]
  - Loss of consciousness [Unknown]
  - Granulomatosis with polyangiitis [Unknown]
  - Angina pectoris [Recovered/Resolved]
  - Diverticulum intestinal [Unknown]
  - Syncope [Unknown]
  - Bone pain [Unknown]
  - Irritable bowel syndrome [Unknown]
  - Pain in extremity [Unknown]
  - Emotional distress [Unknown]
  - Colitis [Unknown]
  - Osteoarthritis [Unknown]
  - Coronary artery disease [Unknown]
  - Anxiety [Recovered/Resolved]
  - Blood pressure increased [Recovered/Resolved]
  - Poor quality sleep [Recovered/Resolved]
  - Gastrointestinal disorder [Recovered/Resolved]
  - Dizziness [Recovered/Resolved]
  - Abdominal pain lower [Unknown]
  - Headache [Unknown]
  - Arthralgia [Unknown]
  - Constipation [Unknown]
  - Tinnitus [Unknown]
  - Apathy [Unknown]
  - Pharyngitis [Unknown]
  - Merycism [Unknown]
  - Somatic symptom disorder [Unknown]
  - Ligament injury [Unknown]
  - Drug hypersensitivity [Unknown]
  - Sinus tachycardia [Unknown]
  - Synovial cyst [Unknown]
  - Fatigue [Unknown]
  - Oedema peripheral [Unknown]
  - Sleep disorder [Unknown]

NARRATIVE: CASE EVENT DATE: 20010401
